FAERS Safety Report 11540384 (Version 1)
Quarter: 2015Q3

REPORT INFORMATION
  Report Type: Spontaneous
  Country: US (occurrence: US)
  Receive Date: 20150923
  Receipt Date: 20150923
  Transmission Date: 20151125
  Serious: No
  Sender: FDA-Public Use
  Company Number: US-BEH-2014045008

PATIENT
  Sex: Female
  Weight: 60 kg

DRUGS (26)
  1. EPIPEN [Concomitant]
     Active Substance: EPINEPHRINE
  2. PREDNISONE. [Concomitant]
     Active Substance: PREDNISONE
  3. BUDESONIDE. [Concomitant]
     Active Substance: BUDESONIDE
  4. AZITHROMYCIN [Concomitant]
     Active Substance: AZITHROMYCIN ANHYDROUS
  5. LEVOFLOXACIN. [Concomitant]
     Active Substance: LEVOFLOXACIN
  6. NYSTATIN. [Concomitant]
     Active Substance: NYSTATIN
  7. MEDROXYPROGESTERONE [Concomitant]
     Active Substance: MEDROXYPROGESTERONE
  8. SODIUM CHLORIDE. [Concomitant]
     Active Substance: SODIUM CHLORIDE
  9. DOXYCYCLINE. [Concomitant]
     Active Substance: DOXYCYCLINE
  10. CHLORPHENIRAMINE. [Concomitant]
     Active Substance: CHLORPHENIRAMINE
  11. CEPHALEXIN. [Concomitant]
     Active Substance: CEPHALEXIN
  12. CLINDAMYCIN [Concomitant]
     Active Substance: CLINDAMYCIN\CLINDAMYCIN PHOSPHATE
  13. OMEPRAZOLE. [Concomitant]
     Active Substance: OMEPRAZOLE
  14. IBUPROFEN. [Concomitant]
     Active Substance: IBUPROFEN
  15. CEFPROZIL. [Concomitant]
     Active Substance: CEFPROZIL
  16. IMODIUM [Concomitant]
     Active Substance: LOPERAMIDE HYDROCHLORIDE
  17. ALIGN [Concomitant]
     Active Substance: BIFIDOBACTERIUM LONGUM SUBSP. INFANTIS
  18. BETAMETHASONE. [Concomitant]
     Active Substance: BETAMETHASONE
  19. FLUCONAZOLE. [Concomitant]
     Active Substance: FLUCONAZOLE
  20. CHOLESTYRAMINE. [Concomitant]
     Active Substance: CHOLESTYRAMINE
  21. SYMBICORT [Concomitant]
     Active Substance: BUDESONIDE\FORMOTEROL FUMARATE DIHYDRATE
  22. AMITRIPTYLINE [Concomitant]
     Active Substance: AMITRIPTYLINE
  23. ALBUTEROL. [Concomitant]
     Active Substance: ALBUTEROL
  24. PRIVIGEN [Suspect]
     Active Substance: HUMAN IMMUNOGLOBULIN G
     Indication: HYPOGAMMAGLOBULINAEMIA
     Route: 042
  25. PATANASE [Concomitant]
     Active Substance: OLOPATADINE HYDROCHLORIDE
  26. DIPHENHYDRAMINE. [Concomitant]
     Active Substance: DIPHENHYDRAMINE

REACTIONS (1)
  - Influenza like illness [Unknown]
